FAERS Safety Report 7545237-8 (Version None)
Quarter: 2011Q2

REPORT INFORMATION
  Report Type: 
  Country: None (occurrence: None)
  Receive Date: 20110610
  Receipt Date: 20110610
  Transmission Date: 20111010
  Serious: Yes (Life-Threatening)
  Sender: FDA-Public Use
  Company Number: None

PATIENT
  Age: 58 Year
  Sex: Female
  Weight: 63.6 kg

DRUGS (2)
  1. THYROID TAB [Suspect]
     Indication: HYPOTHYROIDISM
     Dosage: 75 MG ARMOUR THYROID ONCE A DAY ONE DOSE
     Dates: start: 20110513
  2. THYROID TAB [Suspect]
     Indication: HYPOTHYROIDISM
     Dosage: 75 MG ARMOUR THYROID ONCE A DAY ONE DOSE
     Dates: start: 20110512

REACTIONS (3)
  - PRODUCT QUALITY ISSUE [None]
  - DRUG ERUPTION [None]
  - URTICARIA [None]
